FAERS Safety Report 8011592-8 (Version None)
Quarter: 2011Q4

REPORT INFORMATION
  Report Type: 
  Country: None (occurrence: None)
  Receive Date: 20111228
  Receipt Date: 20111213
  Transmission Date: 20120403
  Serious: Yes (Other)
  Sender: FDA-Public Use
  Company Number: JP-MYLANLABS-2011S1024632

PATIENT
  Age: 69 Year
  Sex: Female
  Weight: 50.7 kg

DRUGS (6)
  1. CARBOPLATIN [Suspect]
     Route: 041
     Dates: start: 20111012
  2. CARBOPLATIN [Suspect]
     Indication: UTERINE CANCER
     Route: 041
     Dates: start: 20110831
  3. PACLITAXEL [Suspect]
     Indication: UTERINE CANCER
     Route: 041
     Dates: start: 20110831
  4. PACLITAXEL [Suspect]
     Route: 041
     Dates: start: 20110920
  5. CARBOPLATIN [Suspect]
     Route: 041
     Dates: start: 20110920
  6. PACLITAXEL [Suspect]
     Route: 041
     Dates: start: 20111012

REACTIONS (2)
  - NEUROGENIC BLADDER [None]
  - URINARY INCONTINENCE [None]
